FAERS Safety Report 13725934 (Version 1)
Quarter: 2017Q3

REPORT INFORMATION
  Report Type: Report from Study
  Country: AT (occurrence: AT)
  Receive Date: 20170706
  Receipt Date: 20170706
  Transmission Date: 20171127
  Serious: Yes (Disabling)
  Sender: FDA-Public Use
  Company Number: PHHY2017AT099196

PATIENT
  Sex: Female
  Weight: 54 kg

DRUGS (1)
  1. ENTRESTO [Suspect]
     Active Substance: SACUBITRIL\VALSARTAN
     Indication: CARDIAC FAILURE
     Route: 065

REACTIONS (3)
  - Weight decreased [Unknown]
  - Abdominal neoplasm [Unknown]
  - Ovarian neoplasm [Unknown]

NARRATIVE: CASE EVENT DATE: 20170621
